FAERS Safety Report 5170532-X (Version None)
Quarter: 2006Q4

REPORT INFORMATION
  Report Type: 
  Country: None (occurrence: None)
  Receive Date: 20061204
  Receipt Date: 20061122
  Transmission Date: 20070319
  Serious: Yes (Other)
  Sender: FDA-Public Use
  Company Number: 30554

PATIENT
  Age: 78 Year
  Sex: Male

DRUGS (8)
  1. ALDARA [Suspect]
     Indication: BASAL CELL CARCINOMA
     Dosage: SEE IMAGE
     Route: 061
     Dates: start: 20060328, end: 20060416
  2. ALDARA [Suspect]
     Indication: BASAL CELL CARCINOMA
     Dosage: SEE IMAGE
     Route: 061
     Dates: start: 20060417, end: 20060513
  3. SINTROM [Concomitant]
  4. OMEPRAZOLE [Concomitant]
  5. CAPTOPRIL [Concomitant]
  6. PHENYTOIN [Concomitant]
  7. AMIODARONE [Concomitant]
  8. TROMALYT [Concomitant]

REACTIONS (3)
  - ERYTHEMA [None]
  - INFLAMMATION [None]
  - ROSACEA [None]
